FAERS Safety Report 25971880 (Version 1)
Quarter: 2025Q4

REPORT INFORMATION
  Report Type: Spontaneous
  Country: US (occurrence: US)
  Receive Date: 20251029
  Receipt Date: 20251029
  Transmission Date: 20260118
  Serious: No
  Sender: ALEXION PHARMACEUTICALS
  Company Number: US-AstraZeneca-CH-00980231A

PATIENT
  Sex: Male

DRUGS (1)
  1. ULTOMIRIS [Suspect]
     Active Substance: RAVULIZUMAB-CWVZ
     Indication: Paroxysmal nocturnal haemoglobinuria
     Dosage: UNK
     Route: 065

REACTIONS (1)
  - Anaemia [Recovered/Resolved]
